FAERS Safety Report 6469692-X (Version None)
Quarter: 2009Q4

REPORT INFORMATION
  Report Type: 
  Country: None (occurrence: None)
  Receive Date: 20091203
  Receipt Date: 20071012
  Transmission Date: 20100525
  Serious: Yes (Hospitalization, Other)
  Sender: FDA-Public Use
  Company Number: US-ELI_LILLY_AND_COMPANY-US200710003352

PATIENT
  Sex: Female

DRUGS (8)
  1. BYETTA [Suspect]
     Indication: TYPE 2 DIABETES MELLITUS
     Dosage: 5 UG, 2/D
     Route: 058
     Dates: start: 20050101, end: 20060101
  2. BYETTA [Suspect]
     Dosage: 10 UG, 2/D
     Route: 058
     Dates: start: 20060101, end: 20071001
  3. NOVOLOG [Concomitant]
     Indication: DIABETES MELLITUS
     Dosage: 40 U, EACH MORNING
     Route: 058
  4. NOVOLOG [Concomitant]
     Dosage: 70 U, EACH EVENING
     Route: 058
  5. COZAAR [Concomitant]
     Indication: HYPERTENSION
     Dosage: 100 MG, DAILY (1/D)
     Route: 048
  6. TOPROL-XL [Concomitant]
     Indication: HYPERTENSION
     Dosage: 60 MG, DAILY (1/D)
     Route: 048
  7. LASIX [Concomitant]
     Dosage: UNK, UNKNOWN
  8. PRANDIN [Concomitant]
     Dosage: 8 UNK, DAILY (1/D)
     Route: 048

REACTIONS (16)
  - ARTHRALGIA [None]
  - BLOOD TEST ABNORMAL [None]
  - CHOLELITHIASIS [None]
  - CYSTITIS [None]
  - EROSIVE OESOPHAGITIS [None]
  - FALL [None]
  - FLANK PAIN [None]
  - GASTRIC HAEMORRHAGE [None]
  - IMPAIRED GASTRIC EMPTYING [None]
  - JOINT INJURY [None]
  - NAUSEA [None]
  - NERVOUSNESS [None]
  - PANCREATITIS [None]
  - STRESS [None]
  - VOMITING [None]
  - WEIGHT DECREASED [None]
